FAERS Safety Report 7711577-2 (Version None)
Quarter: 2011Q3

REPORT INFORMATION
  Report Type: 
  Country: None (occurrence: None)
  Receive Date: 20110826
  Receipt Date: 20110729
  Transmission Date: 20111222
  Serious: No
  Sender: FDA-Public Use
  Company Number: US-BRISTOL-MYERS SQUIBB COMPANY-15936628

PATIENT
  Age: 52 Year
  Sex: Female

DRUGS (6)
  1. FENOFIBRATE [Concomitant]
  2. METFORMIN HCL [Concomitant]
  3. ONGLYZA [Suspect]
  4. OMEPRAZOLE [Concomitant]
  5. LISINOPRIL [Concomitant]
  6. ZOCOR [Concomitant]

REACTIONS (1)
  - WEIGHT DECREASED [None]
